FAERS Safety Report 15629210 (Version 1)
Quarter: 2018Q4

REPORT INFORMATION
  Report Type: Report from Study
  Country: GB (occurrence: GB)
  Receive Date: 20181116
  Receipt Date: 20181116
  Transmission Date: 20190205
  Serious: Yes (Other)
  Sender: FDA-Public Use
  Company Number: GB-CONCORDIA PHARMACEUTICALS INC.-GSH201811-003955

PATIENT
  Age: 28 Year
  Sex: Female

DRUGS (8)
  1. PREDNISOLONE. [Suspect]
     Active Substance: PREDNISOLONE
     Indication: INSULIN AUTOIMMUNE SYNDROME
  2. RITUXIMAB. [Concomitant]
     Active Substance: RITUXIMAB
     Dosage: 1 G?2
  3. DEXAMETHASONE. [Suspect]
     Active Substance: DEXAMETHASONE
     Indication: INSULIN AUTOIMMUNE SYNDROME
  4. MYCOPHENOLATE MOFETIL. [Concomitant]
     Active Substance: MYCOPHENOLATE MOFETIL
  5. AZATHIOPRINE. [Concomitant]
     Active Substance: AZATHIOPRINE
  6. DIAZOXIDE [Suspect]
     Active Substance: DIAZOXIDE
     Indication: INSULIN AUTOIMMUNE SYNDROME
  7. DEXAMETHASONE. [Suspect]
     Active Substance: DEXAMETHASONE
  8. RITUXIMAB. [Concomitant]
     Active Substance: RITUXIMAB
     Dosage: 750 MG/M^2 ?4

REACTIONS (4)
  - Cushing^s syndrome [Unknown]
  - Agitated depression [Unknown]
  - Osteonecrosis [Unknown]
  - Drug ineffective [Unknown]
